FAERS Safety Report 4443356-6 (Version None)
Quarter: 2004Q3

REPORT INFORMATION
  Report Type: 
  Country: None (occurrence: None)
  Receive Date: 20040908
  Receipt Date: 20040831
  Transmission Date: 20050211
  Serious: Yes (Other)
  Sender: FDA-Public Use
  Company Number: 200413253FR

PATIENT
  Age: 50 Year
  Sex: Female

DRUGS (3)
  1. RIFADIN [Suspect]
     Dates: start: 19740101
  2. PIRILENE [Suspect]
     Dates: start: 19740101
  3. STREPTOMYCINE [Concomitant]

REACTIONS (3)
  - MEDICATION ERROR [None]
  - OTOTOXICITY [None]
  - VESTIBULAR DISORDER [None]
